FAERS Safety Report 22220987 (Version 3)
Quarter: 2024Q3

REPORT INFORMATION
  Report Type: Report from Study
  Country: DE (occurrence: DE)
  Receive Date: 20230418
  Receipt Date: 20240821
  Transmission Date: 20241017
  Serious: Yes (Congenital Anomaly, Other)
  Sender: AUROBINDO
  Company Number: DE-UCBSA-2023017711

PATIENT

DRUGS (1)
  1. LACOSAMIDE [Suspect]
     Active Substance: LACOSAMIDE
     Indication: Seizure
     Dosage: UNK
     Route: 064

REACTIONS (2)
  - Trisomy 18 [Not Recovered/Not Resolved]
  - Foetal exposure during pregnancy [Unknown]
